FAERS Safety Report 7798849-0 (Version None)
Quarter: 2011Q4

REPORT INFORMATION
  Report Type: 
  Country: None (occurrence: None)
  Receive Date: 20111006
  Receipt Date: 20110926
  Transmission Date: 20120403
  Serious: Yes (Hospitalization, Other)
  Sender: FDA-Public Use
  Company Number: JP-JNJFOC-20110800673

PATIENT
  Sex: Female
  Weight: 46 kg

DRUGS (25)
  1. MORPHINE HCL ELIXIR [Concomitant]
     Indication: PAIN
     Dosage: 10
     Route: 048
     Dates: start: 20110616, end: 20110616
  2. ASPIRIN [Concomitant]
     Indication: ANGINA PECTORIS
     Dosage: 10
     Route: 048
  3. PLAVIX [Concomitant]
     Indication: ANGINA PECTORIS
     Dosage: 10
     Route: 048
     Dates: start: 20110803
  4. CINACALCET HYDROCHLORIDE [Concomitant]
     Indication: HYPERPARATHYROIDISM SECONDARY
     Dosage: 10
     Route: 048
     Dates: end: 20110708
  5. PLETAL [Concomitant]
     Indication: ARTERIOSCLEROSIS OBLITERANS
     Dosage: 10
     Route: 048
     Dates: start: 20110628, end: 20110706
  6. OLMESARTAN MEDOXOMIL [Concomitant]
     Indication: HYPERTENSION
     Dosage: 10
     Route: 048
     Dates: end: 20110708
  7. PROCHLORPERAZINE [Concomitant]
     Indication: VOMITING
     Route: 048
     Dates: start: 20110618, end: 20110704
  8. WASHED HUMAN RBC [Concomitant]
     Indication: PRODUCT USED FOR UNKNOWN INDICATION
     Dosage: 2 LU/ 1 PER 1 DAY
     Route: 042
     Dates: start: 20110712, end: 20110712
  9. LOXONIN [Concomitant]
     Indication: INTERVERTEBRAL DISC PROTRUSION
     Dosage: 10
     Route: 048
     Dates: end: 20110601
  10. FENTANYL-100 [Suspect]
     Indication: PAIN
     Route: 062
     Dates: start: 20110617, end: 20110704
  11. LENDORMIN [Suspect]
     Indication: INSOMNIA
     Route: 048
     Dates: end: 20110708
  12. LEVOTHYROXINE SODIUM [Concomitant]
     Indication: HYPOTHYROIDISM
     Dosage: 10
     Route: 048
  13. EVISTA [Concomitant]
     Indication: OSTEOPOROSIS
     Dosage: 10
     Route: 048
     Dates: end: 20110708
  14. ARGAMATE [Suspect]
     Indication: HYPERKALAEMIA
     Dosage: 1 DF
     Route: 048
     Dates: end: 20110708
  15. ACETAMINOPHEN [Concomitant]
     Indication: INTERVERTEBRAL DISC PROTRUSION
     Dosage: 10
     Route: 048
  16. SORBITOL [Concomitant]
     Indication: CONSTIPATION
     Dosage: 10
     Route: 042
     Dates: start: 20110620, end: 20110620
  17. LAMISIL [Concomitant]
     Indication: ONYCHOMYCOSIS
     Dosage: 10
     Route: 048
     Dates: end: 20110708
  18. ALMARL [Concomitant]
     Indication: HYPERTENSION
     Dosage: 10
     Route: 048
     Dates: end: 20110708
  19. RABEPRAZOLE SODIUM [Concomitant]
     Indication: GASTRIC ULCER
     Dosage: 10
     Route: 048
  20. LIPITOR [Concomitant]
     Indication: HYPERLIPIDAEMIA
     Dosage: 10
     Route: 048
     Dates: end: 20110708
  21. PENTAZOCINE LACTATE [Concomitant]
     Indication: INTERVERTEBRAL DISC PROTRUSION
     Dosage: 10
     Route: 048
     Dates: end: 20110601
  22. BIOFERMIN [Concomitant]
     Indication: INTESTINAL OBSTRUCTION
     Dosage: 10
     Route: 048
  23. LYRICA [Suspect]
     Indication: INTERVERTEBRAL DISC PROTRUSION
     Route: 048
     Dates: start: 20110701, end: 20110708
  24. CALCIUM CARBONATE [Concomitant]
     Indication: HYPERPARATHYROIDISM SECONDARY
     Dosage: 10
     Route: 048
     Dates: end: 20110708
  25. METHYCOBAL [Concomitant]
     Indication: INTERVERTEBRAL DISC PROTRUSION
     Dosage: 10
     Route: 048
     Dates: end: 20110708

REACTIONS (15)
  - FEELING ABNORMAL [None]
  - CONSTIPATION [None]
  - FALL [None]
  - NERVOUSNESS [None]
  - SICK SINUS SYNDROME [None]
  - DRUG INTOLERANCE [None]
  - WRONG TECHNIQUE IN DRUG USAGE PROCESS [None]
  - NAUSEA [None]
  - DELIRIUM [None]
  - MELAENA [None]
  - VOMITING [None]
  - DIARRHOEA [None]
  - DIZZINESS [None]
  - SOMNOLENCE [None]
  - RESPIRATORY DEPRESSION [None]
